FAERS Safety Report 17745200 (Version 2)
Quarter: 2020Q2

REPORT INFORMATION
  Report Type: Spontaneous
  Country: US (occurrence: US)
  Receive Date: 20200505
  Receipt Date: 20200505
  Transmission Date: 20200714
  Serious: Yes (Other)
  Sender: FDA-Public Use
  Company Number: US-BAYER-2020-074175

PATIENT
  Age: 21 Year
  Sex: Female

DRUGS (1)
  1. KYLEENA [Suspect]
     Active Substance: LEVONORGESTREL
     Dosage: 17.5 ?G PER DAY CONTINUOUSLY
     Route: 015
     Dates: start: 20190702

REACTIONS (5)
  - Haemorrhage in pregnancy [None]
  - Dysgeusia [None]
  - Pregnancy with contraceptive device [None]
  - Drug ineffective [None]
  - Device dislocation [None]

NARRATIVE: CASE EVENT DATE: 20200427
